FAERS Safety Report 6299306-3 (Version None)
Quarter: 2009Q3

REPORT INFORMATION
  Report Type: 
  Country: None (occurrence: None)
  Receive Date: 20090806
  Receipt Date: 20090727
  Transmission Date: 20100115
  Serious: Yes (Hospitalization, Other)
  Sender: FDA-Public Use
  Company Number: NSADSS2001035587

PATIENT
  Age: 61 Year
  Sex: Female

DRUGS (6)
  1. REMICADE [Suspect]
     Route: 041
     Dates: start: 20010305
  2. REMICADE [Suspect]
     Indication: PSORIATIC ARTHROPATHY
     Route: 041
     Dates: start: 20010305
  3. METHOTREXATE [Concomitant]
     Indication: PSORIATIC ARTHROPATHY
     Route: 030
     Dates: start: 19990101
  4. URBASON [Concomitant]
     Indication: PSORIATIC ARTHROPATHY
     Route: 048
     Dates: start: 19990101
  5. GLUCOCORTICOIDS [Concomitant]
  6. FOLIC ACID [Concomitant]

REACTIONS (1)
  - LYMPH NODE TUBERCULOSIS [None]
